FAERS Safety Report 6730794-1 (Version None)
Quarter: 2010Q2

REPORT INFORMATION
  Report Type: 
  Country: None (occurrence: None)
  Receive Date: 20100518
  Receipt Date: 20100510
  Transmission Date: 20101027
  Serious: Yes (Other)
  Sender: FDA-Public Use
  Company Number: US-PFIZER INC-2010026909

PATIENT

DRUGS (3)
  1. GLIPIZIDE [Suspect]
     Dosage: 5 MG, UNK
  2. SAXAGLIPTIN [Concomitant]
     Dosage: UNK
  3. NIASPAN [Concomitant]
     Dosage: UNK

REACTIONS (2)
  - BLOOD GLUCOSE INCREASED [None]
  - HYPOGLYCAEMIA [None]
